FAERS Safety Report 15262321 (Version 1)
Quarter: 2018Q3

REPORT INFORMATION
  Report Type: Spontaneous
  Country: DE (occurrence: DE)
  Receive Date: 20180809
  Receipt Date: 20180809
  Transmission Date: 20181010
  Serious: Yes (Other)
  Sender: FDA-Public Use
  Company Number: PHHY2014DE185244

PATIENT
  Age: 56 Year
  Sex: Female
  Weight: 55.9 kg

DRUGS (6)
  1. CALCILAC [Concomitant]
     Active Substance: CALCIUM CARBONATE
     Indication: HYPOCALCAEMIA
     Dosage: 1250 MG, QD
     Route: 048
     Dates: start: 20140109, end: 20140228
  2. PACLITAXEL. [Suspect]
     Active Substance: PACLITAXEL
     Indication: BREAST CANCER
     Dosage: 143 MG, QW
     Route: 042
     Dates: start: 20131112, end: 20131112
  3. KALINOR [Concomitant]
     Indication: HYPOKALAEMIA
     Dosage: 600 MG, QD
     Route: 048
     Dates: start: 20140109, end: 20140228
  4. PACLITAXEL. [Suspect]
     Active Substance: PACLITAXEL
     Dosage: 143 MG, UNK
     Route: 042
     Dates: start: 20140211
  5. BEVACIZUMAB. [Suspect]
     Active Substance: BEVACIZUMAB
     Dosage: 550 MG, Q2W
     Route: 042
     Dates: start: 20140204, end: 20140204
  6. BEVACIZUMAB. [Suspect]
     Active Substance: BEVACIZUMAB
     Indication: BREAST CANCER
     Dosage: 550 MG, Q2W
     Route: 042
     Dates: start: 20131112, end: 20131112

REACTIONS (3)
  - Hypokalaemia [Recovered/Resolved]
  - Pruritus [Recovered/Resolved]
  - Hypocalcaemia [Recovered/Resolved]

NARRATIVE: CASE EVENT DATE: 20140107
